FAERS Safety Report 24180280 (Version 5)
Quarter: 2024Q4

REPORT INFORMATION
  Report Type: Spontaneous
  Country: CL (occurrence: CL)
  Receive Date: 20240806
  Receipt Date: 20241204
  Transmission Date: 20250115
  Serious: Yes (Other)
  Sender: BIOMARIN
  Company Number: CL-SA-SAC20240730001218

PATIENT

DRUGS (5)
  1. LARONIDASE [Suspect]
     Active Substance: LARONIDASE
     Indication: Mucopolysaccharidosis I
     Dosage: 6 DF OF 2.9 MG, QW
     Route: 042
     Dates: start: 2009, end: 20240719
  2. LARONIDASE [Suspect]
     Active Substance: LARONIDASE
     Dosage: 6 DF OF 2.9 MG, QW
     Route: 042
     Dates: end: 20241108
  3. SILDENAFIL [Concomitant]
     Active Substance: SILDENAFIL
     Indication: Pulmonary hypertension
  4. SILDENAFIL [Concomitant]
     Active Substance: SILDENAFIL
  5. CARVEDILOL [Concomitant]
     Active Substance: CARVEDILOL
     Indication: Product used for unknown indication
     Dosage: UNK

REACTIONS (5)
  - Delirium [Recovered/Resolved]
  - Hallucination, auditory [Recovered/Resolved]
  - Hallucination, auditory [Recovered/Resolved]
  - Asthenia [Unknown]
  - Decreased appetite [Recovered/Resolved]

NARRATIVE: CASE EVENT DATE: 20240101
